FAERS Safety Report 15822862 (Version 6)
Quarter: 2019Q1

REPORT INFORMATION
  Report Type: Report from Study
  Country: US (occurrence: US)
  Receive Date: 20190114
  Receipt Date: 20190220
  Transmission Date: 20190417
  Serious: Yes (Other)
  Sender: FDA-Public Use
  Company Number: PHEH2019US001187

PATIENT
  Age: 68 Year
  Sex: Female

DRUGS (1)
  1. ENTRESTO [Suspect]
     Active Substance: SACUBITRIL\VALSARTAN
     Indication: CARDIAC FAILURE
     Dosage: 50 MG (24/26 MG SACUBITRIL/VALSARTAN), BID
     Route: 048
     Dates: start: 20160701

REACTIONS (13)
  - Oedema peripheral [Unknown]
  - Arthralgia [Unknown]
  - Arthritis [Unknown]
  - Deafness [Unknown]
  - Upper respiratory tract infection [Unknown]
  - Nasopharyngitis [Unknown]
  - Lymphoedema [Unknown]
  - Asthenia [Unknown]
  - Frequent bowel movements [Unknown]
  - Fatigue [Unknown]
  - Bone pain [Unknown]
  - Thermal burn [Unknown]
  - Contusion [Unknown]

NARRATIVE: CASE EVENT DATE: 20190107
